FAERS Safety Report 9825207 (Version 2)
Quarter: 2014Q1

REPORT INFORMATION
  Report Type: Report from Study
  Country: US (occurrence: US)
  Receive Date: 20140117
  Receipt Date: 20140122
  Transmission Date: 20141002
  Serious: Yes (Hospitalization)
  Sender: FDA-Public Use
  Company Number: US-JNJFOC-20140105989

PATIENT
  Age: 13 Year
  Sex: Male
  Weight: 32.1 kg

DRUGS (13)
  1. REMICADE [Suspect]
     Indication: CROHN^S DISEASE
     Route: 042
     Dates: start: 20090602, end: 20100216
  2. 5-ASA [Concomitant]
     Route: 065
  3. 6-MERCAPTOPURINE [Concomitant]
     Route: 065
  4. HUMIRA [Concomitant]
     Route: 065
     Dates: start: 20111109
  5. HUMIRA [Concomitant]
     Route: 065
     Dates: start: 20100415, end: 20110609
  6. PEPTAMEN JUNIOR [Concomitant]
     Indication: NUTRITIONAL SUPPLEMENTATION
     Dosage: 1.5
     Route: 065
  7. CLARITIN [Concomitant]
     Route: 065
  8. HYOSCYAMINE [Concomitant]
     Route: 065
  9. CHOLECALCIFEROL [Concomitant]
     Route: 065
  10. HYDROCORTISONE [Concomitant]
     Route: 065
  11. MUPIROCIN [Concomitant]
     Route: 065
  12. TRIAMCINOLONE [Concomitant]
     Route: 065
  13. OMEPRAZOLE [Concomitant]
     Route: 065

REACTIONS (1)
  - Constipation [Recovered/Resolved]
